FAERS Safety Report 10060566 (Version 1)
Quarter: 2014Q2

REPORT INFORMATION
  Report Type: Spontaneous
  Country: US (occurrence: US)
  Receive Date: 20140404
  Receipt Date: 20140404
  Transmission Date: 20141212
  Serious: No
  Sender: FDA-Public Use
  Company Number: US-TEVA-473499USA

PATIENT
  Age: 24 Year
  Sex: Female
  Weight: 56.75 kg

DRUGS (1)
  1. PARAGARD 380A [Suspect]
     Indication: CONTRACEPTION
     Route: 015
     Dates: start: 20140328, end: 20140328

REACTIONS (4)
  - Feeling hot [Recovered/Resolved]
  - Hyperhidrosis [Recovered/Resolved]
  - Abdominal discomfort [Recovered/Resolved]
  - Pelvic pain [Recovered/Resolved]
